FAERS Safety Report 6415843-2 (Version None)
Quarter: 2009Q4

REPORT INFORMATION
  Report Type: 
  Country: None (occurrence: None)
  Receive Date: 20091027
  Receipt Date: 20091015
  Transmission Date: 20100525
  Serious: Yes (Other)
  Sender: FDA-Public Use
  Company Number: CA-CELGENEUS-028-21880-09101541

PATIENT
  Sex: Male
  Weight: 119.5 kg

DRUGS (2)
  1. REVLIMID [Suspect]
     Indication: MULTIPLE MYELOMA
     Route: 048
     Dates: start: 20090630, end: 20091007
  2. DEXAMETHASONE [Concomitant]
     Indication: DRUG USE FOR UNKNOWN INDICATION
     Route: 065
     Dates: start: 20090630, end: 20091007

REACTIONS (4)
  - ANAEMIA [None]
  - DYSPNOEA [None]
  - OEDEMA [None]
  - URTICARIA [None]
